FAERS Safety Report 5279312-8 (Version None)
Quarter: 2007Q1

REPORT INFORMATION
  Report Type: 
  Country: None (occurrence: None)
  Receive Date: 20070328
  Receipt Date: 20060515
  Transmission Date: 20070707
  Serious: No
  Sender: FDA-Public Use
  Company Number: US-AMGEN-KDL179598

PATIENT
  Sex: Female

DRUGS (12)
  1. NEULASTA [Suspect]
     Indication: CHEMOTHERAPY
     Dates: start: 20060401
  2. TAXOTERE [Concomitant]
  3. CYTOXAN [Concomitant]
  4. ASPIRIN [Concomitant]
  5. IBUPROFEN [Concomitant]
  6. DARVOCET-N 100 [Concomitant]
  7. ZITHROMAX [Concomitant]
  8. LAXATIVES [Concomitant]
  9. LIPITOR [Concomitant]
  10. VITAMIN B6 [Concomitant]
  11. ASCORBIC ACID [Concomitant]
  12. CALCIUM/VITAMINS NOS [Concomitant]

REACTIONS (6)
  - BACK PAIN [None]
  - BONE PAIN [None]
  - CHEST PAIN [None]
  - INSOMNIA [None]
  - SINUSITIS [None]
  - STOMACH DISCOMFORT [None]
